FAERS Safety Report 10935058 (Version 1)
Quarter: 2015Q1

REPORT INFORMATION
  Report Type: Spontaneous
  Country: US (occurrence: US)
  Receive Date: 20150320
  Receipt Date: 20150320
  Transmission Date: 20150721
  Serious: Yes (Other)
  Sender: FDA-Public Use
  Company Number: US-ASTELLAS-2015US004676

PATIENT

DRUGS (1)
  1. LEXISCAN [Suspect]
     Active Substance: REGADENOSON
     Indication: SCAN MYOCARDIAL PERFUSION
     Dosage: UNK, TOTAL DOSE
     Route: 065
     Dates: start: 20150210, end: 20150210

REACTIONS (6)
  - Tremor [Recovered/Resolved]
  - Bundle branch block left [Recovered/Resolved]
  - Tachycardia [Recovered/Resolved]
  - Dyspnoea [Recovered/Resolved]
  - Urticaria [Recovered/Resolved]
  - Epiglottitis [Recovered/Resolved]

NARRATIVE: CASE EVENT DATE: 20150210
